FAERS Safety Report 4723438-1 (Version None)
Quarter: 2005Q3

REPORT INFORMATION
  Report Type: 
  Country: None (occurrence: None)
  Receive Date: 20050725
  Receipt Date: 20050712
  Transmission Date: 20060218
  Serious: Yes (Other)
  Sender: FDA-Public Use
  Company Number: 200515746US

PATIENT
  Sex: Female

DRUGS (8)
  1. KETEK [Suspect]
     Indication: BRONCHITIS
     Dosage: DOSE: 5 DAY PACK
     Dates: start: 20050527, end: 20050619
  2. CALAN [Concomitant]
     Dosage: DOSE: UNK
  3. DIOVAN [Concomitant]
     Dosage: DOSE: UNK
  4. ZETIA                                   /USA/ [Concomitant]
     Dosage: DOSE: UNK
  5. NEXIUM [Concomitant]
     Dosage: DOSE: UNK
  6. PEPCID [Concomitant]
     Dosage: DOSE: UNK
  7. LUMIGAN [Concomitant]
     Indication: GLAUCOMA
     Dosage: DOSE: UNK
  8. LUMIGAN [Concomitant]
     Indication: RETINOPATHY
     Dosage: DOSE: UNK

REACTIONS (6)
  - EYE MOVEMENT DISORDER [None]
  - RETINAL OEDEMA [None]
  - VISION BLURRED [None]
  - VISUAL BRIGHTNESS [None]
  - VISUAL DISTURBANCE [None]
  - VISUAL FIELD DEFECT [None]
